FAERS Safety Report 16600583 (Version 5)
Quarter: 2025Q2

REPORT INFORMATION
  Report Type: Spontaneous
  Country: PL (occurrence: PL)
  Receive Date: 20190720
  Receipt Date: 20250627
  Transmission Date: 20250716
  Serious: Yes (Hospitalization, Other)
  Sender: AUROBINDO
  Company Number: None

PATIENT
  Age: 68 Year
  Sex: Female

DRUGS (8)
  1. BISOPROLOL [Suspect]
     Active Substance: BISOPROLOL
     Indication: Angina pectoris
     Dosage: 5 MILLIGRAM, ONCE A DAY
     Route: 065
  2. RAMIPRIL [Suspect]
     Active Substance: RAMIPRIL
     Indication: Angina pectoris
     Dosage: 5 MILLIGRAM, ONCE A DAY
     Route: 065
  3. SIMVASTATIN [Suspect]
     Active Substance: SIMVASTATIN
     Indication: Angina pectoris
     Dosage: 20 MILLIGRAM, ONCE A DAY
     Route: 065
  4. ASPIRIN [Suspect]
     Active Substance: ASPIRIN
     Indication: Angina pectoris
     Dosage: 75 MILLIGRAM, ONCE A DAY
     Route: 065
  5. PROPAFENONE [Suspect]
     Active Substance: PROPAFENONE
     Indication: Angina pectoris
     Dosage: 300 MILLIGRAM,ONCE A DAY,150 MG, 2X PER DAY
     Route: 065
  6. PROPAFENONE [Suspect]
     Active Substance: PROPAFENONE
     Indication: Atrial fibrillation
  7. RIVAROXABAN [Concomitant]
     Active Substance: RIVAROXABAN
     Indication: Product used for unknown indication
     Dosage: 30 MILLIGRAM, ONCE A DAY,15 MG, 2X PER DAY
     Route: 065
  8. RIVAROXABAN [Concomitant]
     Active Substance: RIVAROXABAN
     Dosage: 20 MILLIGRAM, ONCE A DAY
     Route: 065

REACTIONS (5)
  - Pulmonary embolism [Recovered/Resolved]
  - Angina pectoris [Recovered/Resolved]
  - Arrhythmia [Recovered/Resolved]
  - Bundle branch block left [Unknown]
  - Defect conduction intraventricular [Recovered/Resolved]
